FAERS Safety Report 12615486 (Version 1)
Quarter: 2016Q3

REPORT INFORMATION
  Report Type: Report from Study
  Country: US (occurrence: US)
  Receive Date: 20160802
  Receipt Date: 20160802
  Transmission Date: 20161109
  Serious: Yes (Other)
  Sender: FDA-Public Use
  Company Number: US-GILEAD-2016-0226075

PATIENT
  Age: 67 Year
  Sex: Male

DRUGS (2)
  1. AMBRISENTAN [Suspect]
     Active Substance: AMBRISENTAN
     Indication: PRODUCT USED FOR UNKNOWN INDICATION
     Dosage: 10 MG, QD
     Route: 065
  2. WARFARIN [Concomitant]
     Active Substance: WARFARIN

REACTIONS (3)
  - Unevaluable event [Unknown]
  - Oxygen saturation decreased [Unknown]
  - Drug ineffective [Unknown]
